FAERS Safety Report 20488519 (Version 2)
Quarter: 2022Q1

REPORT INFORMATION
  Report Type: Spontaneous
  Country: US (occurrence: None)
  Receive Date: 20220218
  Receipt Date: 20220331
  Transmission Date: 20220424
  Serious: No
  Sender: FDA-Public Use
  Company Number: 2022A068920

PATIENT
  Age: 397 Month
  Sex: Female

DRUGS (3)
  1. SYMBICORT [Suspect]
     Active Substance: BUDESONIDE\FORMOTEROL FUMARATE DIHYDRATE
     Indication: Asthma
     Dosage: UNKNOWN FREQUENCY AND DOSE UNKNOWN
     Route: 055
     Dates: start: 2020
  2. SYMBICORT [Suspect]
     Active Substance: BUDESONIDE\FORMOTEROL FUMARATE DIHYDRATE
     Indication: Asthma
     Dosage: 2 PUFFS BY MOUTH TWICE DAILY UNKNOWN
     Route: 055
     Dates: start: 202103
  3. ALBUTEROL [Concomitant]
     Active Substance: ALBUTEROL

REACTIONS (10)
  - Asthma [Recovering/Resolving]
  - Device use issue [Recovered/Resolved]
  - Exercise tolerance decreased [Recovering/Resolving]
  - Sluggishness [Recovering/Resolving]
  - Speech disorder [Recovered/Resolved]
  - Fatigue [Recovering/Resolving]
  - Chest pain [Recovering/Resolving]
  - Chest discomfort [Recovering/Resolving]
  - Device delivery system issue [Unknown]
  - Drug dose omission by device [Recovering/Resolving]

NARRATIVE: CASE EVENT DATE: 20220201
